FAERS Safety Report 9446913 (Version 2)
Quarter: 2013Q3

REPORT INFORMATION
  Report Type: Spontaneous
  Country: US (occurrence: US)
  Receive Date: 20130807
  Receipt Date: 20130904
  Transmission Date: 20140515
  Serious: No
  Sender: FDA-Public Use
  Company Number: US-AMGEN-USASP2013050960

PATIENT
  Age: 59 Year
  Sex: Female
  Weight: 83.45 kg

DRUGS (5)
  1. ENBREL [Suspect]
     Indication: PSORIATIC ARTHROPATHY
     Dosage: 50 MG, WEEKLY
     Route: 058
     Dates: start: 20121023
  2. ENBREL [Suspect]
     Indication: PSORIASIS
  3. PROZAC [Concomitant]
     Dosage: 10 UNK, QD
     Route: 048
  4. MOBIC [Concomitant]
     Dosage: 15 UNK, QD
     Route: 048
  5. CRESTOR [Concomitant]
     Dosage: 10 UNK, QD
     Route: 048

REACTIONS (1)
  - Headache [Recovered/Resolved]
